FAERS Safety Report 25519639 (Version 2)
Quarter: 2025Q3

REPORT INFORMATION
  Report Type: Spontaneous
  Country: EU (occurrence: EU)
  Receive Date: 20250704
  Receipt Date: 20250708
  Transmission Date: 20251021
  Serious: Yes (Other)
  Sender: AMGEN
  Company Number: EU-AMGEN-DEUSP2025130629

PATIENT

DRUGS (1)
  1. BLINATUMOMAB [Suspect]
     Active Substance: BLINATUMOMAB
     Indication: Rheumatoid arthritis
     Route: 040

REACTIONS (5)
  - Rheumatoid arthritis [Unknown]
  - Cytokine release syndrome [Unknown]
  - Infection [Unknown]
  - Drug effective for unapproved indication [Unknown]
  - Off label use [Unknown]
